FAERS Safety Report 9153592 (Version 2)
Quarter: 2013Q1

REPORT INFORMATION
  Report Type: Spontaneous
  Country: GB (occurrence: None)
  Receive Date: 20130205
  Receipt Date: 20130214
  Transmission Date: 20140127
  Serious: Yes (Other)
  Sender: FDA-Public Use
  Company Number: AUR-APL-2013-01143

PATIENT
  Age: 38 Year
  Sex: Male

DRUGS (7)
  1. CIPROFLOXACIN [Suspect]
     Indication: PRODUCT USED FOR UNKNOWN INDICATION
     Dates: start: 201206
  2. OMEPRAZOLE (OMEPRAZOLE) [Suspect]
     Indication: ABDOMINAL PAIN
     Dates: start: 201106
  3. DOXYCYCLINE (DOXYCYCLINE) [Suspect]
     Indication: URINARY TRACT INFECTION
     Dates: start: 201111
  4. MINOCYCLINE (MINOCYCLINE) [Suspect]
     Indication: PRODUCT USED FOR UNKNOWN INDICATION
  5. NITROFURANTOIN [Suspect]
     Indication: PRODUCT USED FOR UNKNOWN INDICATION
     Dates: start: 201211
  6. SEROQUEL (QUETIAPINE FUMARATE) [Suspect]
     Indication: ANXIETY
  7. LAXIDO [Concomitant]

REACTIONS (27)
  - Tendonitis [None]
  - Gastric ulcer [None]
  - Gastrooesophageal reflux disease [None]
  - Tooth disorder [None]
  - Headache [None]
  - Malaise [None]
  - Chromaturia [None]
  - Melanocytic naevus [None]
  - Skin exfoliation [None]
  - Dehydration [None]
  - Pigmentation disorder [None]
  - Drug ineffective [None]
  - Irritable bowel syndrome [None]
  - Hormone level abnormal [None]
  - Gastric infection [None]
  - Gastric ulcer [None]
  - Alopecia [None]
  - Madarosis [None]
  - Urinary tract infection [None]
  - Anxiety [None]
  - Gastrointestinal disorder [None]
  - Hair colour changes [None]
  - Yellow skin [None]
  - Pallor [None]
  - Dermatitis [None]
  - Mass [None]
  - Bone pain [None]
